FAERS Safety Report 7220871-3 (Version None)
Quarter: 2011Q1

REPORT INFORMATION
  Report Type: 
  Country: None (occurrence: None)
  Receive Date: 20110112
  Receipt Date: 20110110
  Transmission Date: 20110831
  Serious: Yes (Life-Threatening, Hospitalization)
  Sender: FDA-Public Use
  Company Number: FR-JNJFOC-20110101200

PATIENT
  Sex: Male

DRUGS (4)
  1. RISPERDAL [Suspect]
     Route: 048
  2. RISPERDAL [Suspect]
     Route: 048
  3. RISPERDAL [Suspect]
     Indication: AUTISM SPECTRUM DISORDER
     Route: 048
  4. RISPERDAL [Suspect]
     Route: 048

REACTIONS (5)
  - INTENTIONAL OVERDOSE [None]
  - DRUG LEVEL DECREASED [None]
  - EXTRAPYRAMIDAL DISORDER [None]
  - SUICIDE ATTEMPT [None]
  - DRUG INEFFECTIVE [None]
